FAERS Safety Report 6406574-3 (Version None)
Quarter: 2009Q4

REPORT INFORMATION
  Report Type: 
  Country: None (occurrence: None)
  Receive Date: 20091015
  Receipt Date: 20090930
  Transmission Date: 20100525
  Serious: Yes (Other)
  Sender: FDA-Public Use
  Company Number: 20090433

PATIENT
  Age: 67 Year
  Sex: Male

DRUGS (2)
  1. AMINOCAPROIC ACID [Suspect]
     Indication: EPISTAXIS
     Dosage: 1 G EVERY 6 HOURS;
  2. AMOXICILLIN [Concomitant]

REACTIONS (3)
  - COLITIS ISCHAEMIC [None]
  - HAEMOGLOBIN DECREASED [None]
  - PLATELET COUNT DECREASED [None]
